FAERS Safety Report 8163606-2 (Version None)
Quarter: 2012Q1

REPORT INFORMATION
  Report Type: 
  Country: None (occurrence: None)
  Receive Date: 20120224
  Receipt Date: 20120220
  Transmission Date: 20120608
  Serious: Yes (Life-Threatening, Hospitalization, Other)
  Sender: FDA-Public Use
  Company Number: FR-PFIZER INC-2011313637

PATIENT
  Age: 15 Year
  Sex: Female

DRUGS (1)
  1. DOSTINEX [Suspect]
     Indication: PROLACTIN-PRODUCING PITUITARY TUMOUR
     Dosage: 0.5 MG, WEEKLY
     Dates: start: 20101130

REACTIONS (8)
  - ARTHROPOD STING [None]
  - ABDOMINAL PAIN [None]
  - ASTHMA [None]
  - ANGIOEDEMA [None]
  - HYPERSENSITIVITY [None]
  - VASODILATATION [None]
  - DYSPNOEA [None]
  - TINNITUS [None]
